FAERS Safety Report 17107978 (Version 6)
Quarter: 2020Q2

REPORT INFORMATION
  Report Type: Spontaneous
  Country: IT (occurrence: IT)
  Receive Date: 20191203
  Receipt Date: 20200605
  Transmission Date: 20200713
  Serious: Yes (Hospitalization, Other)
  Sender: FDA-Public Use
  Company Number: IT-PFIZER INC-2019522472

PATIENT
  Age: 53 Year
  Sex: Male

DRUGS (9)
  1. RAMIPRIL. [Suspect]
     Active Substance: RAMIPRIL
     Indication: HYPERTENSION
     Dosage: 980 MG (TOTAL)
  2. DIAZEPAM. [Concomitant]
     Active Substance: DIAZEPAM
     Indication: ANXIETY
     Dosage: 6 MG
     Route: 048
  3. METFORMIN [Concomitant]
     Active Substance: METFORMIN HYDROCHLORIDE
     Indication: DIABETES MELLITUS
     Dosage: UNK
  4. VALPROATE SODIUM/VALPROIC ACID [Suspect]
     Active Substance: VALPROIC ACID
     Indication: EPILEPSY
     Dosage: 12 G, TOTAL
  5. GLICLAZIDE [Concomitant]
     Active Substance: GLICLAZIDE
     Indication: DIABETES MELLITUS
     Dosage: UNK
  6. CLOTIAPINE [Concomitant]
     Active Substance: CLOTHIAPINE
     Indication: ANXIETY
     Dosage: UNK
  7. QUETIAPINE FUMARATE. [Concomitant]
     Active Substance: QUETIAPINE FUMARATE
     Indication: DEPRESSION
     Dosage: UNK
  8. EZETIMIBE. [Concomitant]
     Active Substance: EZETIMIBE
     Indication: BLOOD CHOLESTEROL INCREASED
     Dosage: UNK
  9. AMLODIPINE BESILATE [Suspect]
     Active Substance: AMLODIPINE BESYLATE
     Indication: HYPERTENSION
     Dosage: UNK

REACTIONS (7)
  - Drug abuse [Unknown]
  - Sopor [Unknown]
  - Suspected suicide attempt [Unknown]
  - Respiratory failure [Unknown]
  - Hypotension [Unknown]
  - Overdose [Unknown]
  - Poisoning [Unknown]

NARRATIVE: CASE EVENT DATE: 20191106
